FAERS Safety Report 12986167 (Version 2)
Quarter: 2017Q2

REPORT INFORMATION
  Report Type: Report from Study
  Country: JP (occurrence: JP)
  Receive Date: 20161130
  Receipt Date: 20170502
  Transmission Date: 20170830
  Serious: Yes (Hospitalization)
  Sender: FDA-Public Use
  Company Number: JP-ASTELLAS-2016JP020301AA

PATIENT
  Age: 67 Year
  Sex: Male

DRUGS (12)
  1. BROTIZOLAM [Concomitant]
     Active Substance: BROTIZOLAM
     Indication: PROSTATE CANCER
     Dosage: 0.25 MG, ONCE DAILY
     Route: 048
  2. GONAX [Concomitant]
     Active Substance: DEGARELIX
     Indication: PROSTATE CANCER
     Route: 058
     Dates: start: 20141203, end: 20160928
  3. RANMARK [Concomitant]
     Active Substance: DENOSUMAB
     Indication: PROSTATE CANCER
     Route: 058
     Dates: start: 20141203
  4. REFLEX                             /01293201/ [Concomitant]
     Active Substance: MIRTAZAPINE
     Indication: PROSTATE CANCER
     Route: 048
     Dates: start: 20130718, end: 20141217
  5. LYRICA [Concomitant]
     Active Substance: PREGABALIN
     Indication: PROSTATE CANCER
     Route: 048
     Dates: start: 20131218
  6. ENZALUTAMIDE [Suspect]
     Active Substance: ENZALUTAMIDE
     Indication: HORMONE-REFRACTORY PROSTATE CANCER
     Route: 048
     Dates: start: 20141203, end: 20141221
  7. DECADRON [Concomitant]
     Active Substance: DEXAMETHASONE
     Indication: PROSTATE CANCER
     Route: 048
     Dates: start: 20100108, end: 20150107
  8. MAGLAX [Concomitant]
     Active Substance: MAGNESIUM OXIDE
     Indication: PROSTATE CANCER
     Route: 048
     Dates: start: 20130326, end: 20151225
  9. ASPARA-CA [Concomitant]
     Active Substance: CALCIUM ASPARTATE
     Indication: PROSTATE CANCER
     Route: 048
     Dates: start: 20130219, end: 20150508
  10. GLYCYRON                           /00466401/ [Concomitant]
     Indication: PROSTATE CANCER
     Route: 048
     Dates: start: 20130911, end: 20150902
  11. OXYCONTIN [Concomitant]
     Active Substance: OXYCODONE HYDROCHLORIDE
     Indication: PROSTATE CANCER
     Route: 048
     Dates: start: 20130213
  12. EDIROL [Concomitant]
     Active Substance: ELDECALCITOL
     Indication: PROSTATE CANCER
     Dosage: 0.75 ?G, ONCE DAILY
     Route: 048
     Dates: start: 20130219, end: 20141217

REACTIONS (1)
  - Interstitial lung disease [Recovered/Resolved]

NARRATIVE: CASE EVENT DATE: 20141217
